FAERS Safety Report 9017235 (Version 2)
Quarter: 2013Q1

REPORT INFORMATION
  Report Type: Spontaneous
  Country: US (occurrence: US)
  Receive Date: 20130117
  Receipt Date: 20130222
  Transmission Date: 20140127
  Serious: Yes (Hospitalization)
  Sender: FDA-Public Use
  Company Number: US-ASTRAZENECA-2013SE02205

PATIENT
  Age: 68 Year
  Sex: Female
  Weight: 89.8 kg

DRUGS (7)
  1. SYMBICORT PMDI [Suspect]
     Indication: CHRONIC OBSTRUCTIVE PULMONARY DISEASE
     Dosage: 160/4.5 MCG, 2 PUFFS, TWO TIMES A DAY
     Route: 055
     Dates: start: 2008
  2. CORTISONE [Suspect]
     Indication: KNEE DEFORMITY
     Route: 065
     Dates: start: 2011
  3. SPIRIVA [Concomitant]
     Indication: CHRONIC OBSTRUCTIVE PULMONARY DISEASE
     Dosage: DAILY
     Route: 055
  4. THYROID HORMONE REPLACEMENT THERAPY [Concomitant]
     Route: 048
     Dates: start: 2007
  5. POTASSIUM [Concomitant]
     Indication: ELECTROLYTE SUBSTITUTION THERAPY
     Route: 048
     Dates: start: 2006
  6. FUROSEMIDE [Concomitant]
     Indication: FLUID RETENTION
     Route: 048
  7. OXYGEN [Concomitant]

REACTIONS (6)
  - Hypotension [Recovered/Resolved]
  - Chest discomfort [Unknown]
  - Arthropathy [Unknown]
  - Swelling face [Unknown]
  - Off label use [Unknown]
  - Drug dose omission [Unknown]
